FAERS Safety Report 4334383-8 (Version None)
Quarter: 2004Q1

REPORT INFORMATION
  Report Type: 
  Country: None (occurrence: None)
  Receive Date: 20040326
  Receipt Date: 20031231
  Transmission Date: 20041129
  Serious: No
  Sender: FDA-Public Use
  Company Number: US-JNJFOC-20040100540

PATIENT
  Age: 86 Year
  Sex: Male

DRUGS (2)
  1. REMINYL [Suspect]
     Indication: DEMENTIA
     Dosage: 4 MG, 2 IN 1 DAY, ORAL; 8 MG, 2 IN 1 DAY, ORAL
     Route: 048
     Dates: start: 20021001
  2. REMINYL [Suspect]
     Indication: DEMENTIA
     Dosage: 4 MG, 2 IN 1 DAY, ORAL; 8 MG, 2 IN 1 DAY, ORAL
     Route: 048
     Dates: start: 20021101

REACTIONS (1)
  - BLOOD URINE PRESENT [None]
